FAERS Safety Report 5854733-0 (Version None)
Quarter: 2008Q3

REPORT INFORMATION
  Report Type: 
  Country: None (occurrence: None)
  Receive Date: 20080822
  Receipt Date: 20071009
  Transmission Date: 20090109
  Serious: No
  Sender: FDA-Public Use
  Company Number: US-ABBOTT-07P-163-0420088-00

PATIENT
  Sex: Female
  Weight: 64.014 kg

DRUGS (5)
  1. SYNTHROID [Suspect]
     Indication: THYROIDECTOMY
     Route: 048
     Dates: start: 20070101, end: 20070801
  2. SYNTHROID [Suspect]
     Route: 048
     Dates: start: 20070801
  3. ESOMEPRAZOLE MAGNESIUM [Concomitant]
     Indication: GASTROOESOPHAGEAL REFLUX DISEASE
     Route: 048
  4. DULOXETINE HYDROCHLORIDE [Concomitant]
     Indication: ANXIETY
     Route: 048
  5. DULOXETINE HYDROCHLORIDE [Concomitant]
     Indication: FIBROMYALGIA

REACTIONS (2)
  - CONSTIPATION [None]
  - FATIGUE [None]
